FAERS Safety Report 4401624-8 (Version None)
Quarter: 2004Q3

REPORT INFORMATION
  Report Type: 
  Country: None (occurrence: None)
  Receive Date: 20040719
  Receipt Date: 20040528
  Transmission Date: 20050211
  Serious: Yes (Disabling)
  Sender: FDA-Public Use
  Company Number: FR-ROCHE-369276

PATIENT
  Age: 60 Year
  Sex: Male
  Weight: 72 kg

DRUGS (2)
  1. ROVALCYTE [Suspect]
     Route: 048
     Dates: end: 20040315
  2. ROVALCYTE [Suspect]
     Route: 048

REACTIONS (1)
  - MACULAR OEDEMA [None]
